FAERS Safety Report 22048195 (Version 1)
Quarter: 2023Q1

REPORT INFORMATION
  Report Type: Spontaneous
  Country: CN (occurrence: CN)
  Receive Date: 20230301
  Receipt Date: 20230301
  Transmission Date: 20230418
  Serious: Yes (Other)
  Sender: FDA-Public Use
  Company Number: None

PATIENT
  Age: 55 Year
  Sex: Female
  Weight: 53 kg

DRUGS (9)
  1. CYCLOPHOSPHAMIDE [Suspect]
     Active Substance: CYCLOPHOSPHAMIDE
     Indication: Breast cancer stage II
     Dosage: 0.8 G, QD, DILUTED WITH 50 ML OF SODIUM CHLORIDE, AS A PART OF SINGLE TARGET THERAPY + TC REGIMEN 4T
     Route: 041
     Dates: start: 20230130, end: 20230130
  2. CYCLOPHOSPHAMIDE [Suspect]
     Active Substance: CYCLOPHOSPHAMIDE
     Indication: Chemotherapy
  3. SODIUM CHLORIDE [Suspect]
     Active Substance: SODIUM CHLORIDE
     Indication: Medication dilution
     Dosage: 250 ML, QD, USED TO DILUTE 318 MG OF TRASTUZUMAB
     Route: 041
     Dates: start: 20230130, end: 20230130
  4. SODIUM CHLORIDE [Suspect]
     Active Substance: SODIUM CHLORIDE
     Dosage: 200 ML, QD, USED TO DILUTE 100 MG OF DOCETAXEL
     Route: 041
     Dates: start: 20230130, end: 20230130
  5. DOCETAXEL [Suspect]
     Active Substance: DOCETAXEL
     Indication: Breast cancer stage II
     Dosage: 100 MG, QD, DILUTED WITH 200 ML OF SODIUM CHLORIDE, AS A PART OF SINGLE TARGET THERAPY + TC REGIMEN
     Route: 041
     Dates: start: 20230130, end: 20230130
  6. DOCETAXEL [Suspect]
     Active Substance: DOCETAXEL
     Indication: Chemotherapy
  7. TRASTUZUMAB [Suspect]
     Active Substance: TRASTUZUMAB
     Indication: Breast cancer stage II
     Dosage: 318 MG, QD, DILUTED WITH 250 ML OF SODIUM CHLORIDE, AS A PART OF SINGLE TARGET THERAPY + TC REGIMEN
     Route: 041
     Dates: start: 20230130, end: 20230130
  8. TRASTUZUMAB [Suspect]
     Active Substance: TRASTUZUMAB
     Indication: Chemotherapy
  9. SODIUM CHLORIDE [Suspect]
     Active Substance: SODIUM CHLORIDE
     Indication: Medication dilution
     Dosage: 50 ML, QD, USED TO DILUTE 0.8 G OF CYCLOPHOSPHAMIDE
     Route: 041
     Dates: start: 20230130, end: 20230130

REACTIONS (3)
  - White blood cell count decreased [Recovered/Resolved]
  - Neutrophil count decreased [Recovered/Resolved]
  - Myelosuppression [Recovered/Resolved]

NARRATIVE: CASE EVENT DATE: 20230206
